FAERS Safety Report 7265259-4 (Version None)
Quarter: 2011Q1

REPORT INFORMATION
  Report Type: 
  Country: None (occurrence: None)
  Receive Date: 20110131
  Receipt Date: 20110125
  Transmission Date: 20110831
  Serious: Yes (Hospitalization, Other)
  Sender: FDA-Public Use
  Company Number: US-PFIZER INC-2010091874

PATIENT
  Sex: Female

DRUGS (11)
  1. LEVOTHYROXINE [Concomitant]
     Indication: HYPOTHYROIDISM
     Dosage: UNK
     Dates: start: 20050101
  2. LORATADINE [Concomitant]
     Indication: HYPERSENSITIVITY
     Dosage: UNK
     Dates: start: 20080101
  3. GEODON [Concomitant]
     Indication: BIPOLAR DISORDER
     Dosage: UNK
     Dates: start: 20080101
  4. PAROXETINE [Concomitant]
     Indication: DEPRESSION
     Dosage: UNK
     Dates: start: 20080101, end: 20100101
  5. PAROXETINE [Concomitant]
     Indication: ANXIETY
  6. TOPAMAX [Concomitant]
     Indication: MIGRAINE
     Dosage: UNK
     Dates: start: 20050101
  7. BENADRYL [Concomitant]
     Indication: INSOMNIA
     Dosage: UNK
     Dates: start: 20050101
  8. GEODON [Concomitant]
     Indication: DEPRESSION
  9. OMEPRAZOLE [Concomitant]
     Indication: GASTROOESOPHAGEAL REFLUX DISEASE
     Dosage: UNK
     Dates: start: 20050101
  10. CHANTIX [Suspect]
     Indication: SMOKING CESSATION THERAPY
     Dosage: 1 MG, 2X/DAY
     Dates: start: 20080617, end: 20100101
  11. TOPAMAX [Concomitant]
     Indication: CONVULSION

REACTIONS (5)
  - ANXIETY [None]
  - SUICIDE ATTEMPT [None]
  - INTENTIONAL OVERDOSE [None]
  - SLEEP TERROR [None]
  - DEPRESSION [None]
